FAERS Safety Report 8776369 (Version 3)
Quarter: 2012Q4

REPORT INFORMATION
  Report Type: 
  Country: JP (occurrence: JP)
  Receive Date: 20120910
  Receipt Date: 20121102
  Transmission Date: 20130627
  Serious: No
  Sender: FDA-Public Use
  Company Number: JP-PFIZER INC-2012220668

PATIENT
  Age: 82 Year
  Sex: Male

DRUGS (2)
  1. LYRICA [Suspect]
     Indication: PAIN
     Dosage: 200 mg, daily
     Route: 048
     Dates: end: 2012
  2. LYRICA [Suspect]
     Dosage: 150 mg, daily
     Route: 048
     Dates: start: 2012

REACTIONS (1)
  - Somnolence [Recovered/Resolved]
